FAERS Safety Report 4977975-5 (Version None)
Quarter: 2006Q2

REPORT INFORMATION
  Report Type: 
  Country: None (occurrence: None)
  Receive Date: 20060420
  Receipt Date: 20060414
  Transmission Date: 20061013
  Serious: Yes (Life-Threatening, Hospitalization)
  Sender: FDA-Public Use
  Company Number: 2006SE02184

PATIENT
  Age: 23 Year
  Sex: Male

DRUGS (3)
  1. SEROQUEL [Suspect]
     Indication: ACUTE PSYCHOSIS
     Route: 048
     Dates: start: 20060324, end: 20060403
  2. SEROQUEL [Suspect]
     Route: 048
     Dates: start: 20060404, end: 20060414
  3. AKINETON [Concomitant]
     Dates: end: 20060414

REACTIONS (1)
  - PULMONARY EMBOLISM [None]
